FAERS Safety Report 9021007 (Version 1)
Quarter: 2013Q1

REPORT INFORMATION
  Report Type: Spontaneous
  Country: US (occurrence: US)
  Receive Date: 20130119
  Receipt Date: 20130119
  Transmission Date: 20140127
  Serious: No
  Sender: FDA-Public Use
  Company Number: US-ALLERGAN-1204644US

PATIENT
  Age: 43 Year
  Sex: Female

DRUGS (5)
  1. BOTOX COSMETIC [Suspect]
     Indication: SKIN WRINKLING
     Dosage: 24 UNITS, SINGLE
     Route: 030
     Dates: start: 20120323, end: 20120323
  2. BOTOX COSMETIC [Suspect]
     Dosage: UNK
     Route: 030
     Dates: start: 20111024, end: 20111024
  3. BOTOX COSMETIC [Suspect]
     Dosage: UNK
     Route: 030
     Dates: start: 20110523, end: 20110523
  4. BOTOX COSMETIC [Suspect]
     Dosage: UNK
     Route: 030
     Dates: start: 20101208, end: 20101208
  5. BOTOX COSMETIC [Suspect]
     Dosage: UNK
     Route: 030
     Dates: start: 20100714, end: 20100714

REACTIONS (3)
  - Dry eye [Recovering/Resolving]
  - Dry mouth [Recovering/Resolving]
  - Wrong technique in drug usage process [Unknown]
